FAERS Safety Report 10395843 (Version 1)
Quarter: 2014Q1

REPORT INFORMATION
  Report Type: Spontaneous
  Country: US (occurrence: None)
  Receive Date: 20130724
  Receipt Date: 20130724
  Transmission Date: 20141002
  Serious: Yes (Other)
  Sender: FDA-Public Use
  Company Number: PHHY2010US40885

PATIENT
  Age: 58 Year
  Sex: Male

DRUGS (3)
  1. GLEEVEC (IMATINIB) [Suspect]
     Indication: NEOPLASM MALIGNANT
     Route: 048
     Dates: end: 201005
  2. SUTENT (SUNITINIB MALATE) [Suspect]
     Indication: GASTRIC CANCER
  3. SUTENT (SUNITINIB MALATE) [Suspect]
     Indication: GASTROINTESTINAL STROMAL TUMOUR

REACTIONS (2)
  - Neoplasm progression [None]
  - Metastases to liver [None]
